FAERS Safety Report 4876701-8 (Version None)
Quarter: 2006Q1

REPORT INFORMATION
  Report Type: 
  Country: None (occurrence: None)
  Receive Date: 20060110
  Receipt Date: 20051005
  Transmission Date: 20060701
  Serious: Yes (Hospitalization)
  Sender: FDA-Public Use
  Company Number: US-MERCK-0510USA04605

PATIENT
  Age: 59 Year
  Sex: Female
  Weight: 54 kg

DRUGS (5)
  1. VIOXX [Suspect]
     Indication: ARTHRITIS
     Route: 048
     Dates: end: 20040501
  2. SOMA [Concomitant]
     Route: 065
  3. TYLENOL W/ CODEINE NO. 3 [Concomitant]
     Route: 065
  4. SYNTHROID [Concomitant]
     Route: 065
  5. HYDROCODONE HYDROCHLORIDE [Concomitant]
     Route: 065

REACTIONS (8)
  - ANGINA PECTORIS [None]
  - ARRHYTHMIA [None]
  - CARDIAC FAILURE CONGESTIVE [None]
  - CARDIOVASCULAR DISORDER [None]
  - MIGRAINE [None]
  - MITRAL VALVE PROLAPSE [None]
  - NEPHROLITHIASIS [None]
  - POST PROCEDURAL COMPLICATION [None]
